FAERS Safety Report 10255172 (Version 1)
Quarter: 2014Q2

REPORT INFORMATION
  Report Type: Spontaneous
  Country: CN (occurrence: CN)
  Receive Date: 20140624
  Receipt Date: 20140624
  Transmission Date: 20141212
  Serious: Yes (Other)
  Sender: FDA-Public Use
  Company Number: CN-TAKEDA-2014JNJ003974

PATIENT
  Sex: 0

DRUGS (2)
  1. VELCADE [Suspect]
     Indication: PLASMA CELL MYELOMA
     Dosage: 1.3 MG/M2, QD
     Route: 042
  2. DEXAMETHASONE [Concomitant]
     Indication: PLASMA CELL MYELOMA
     Dosage: 20-40MG/D

REACTIONS (15)
  - Haematotoxicity [Recovered/Resolved]
  - Peripheral sensory neuropathy [Recovered/Resolved]
  - Fatigue [Recovered/Resolved]
  - Infection [Recovered/Resolved]
  - Herpes zoster [Recovered/Resolved]
  - Constipation [Recovered/Resolved]
  - Intestinal obstruction [Recovered/Resolved]
  - Lung infection [Recovered/Resolved]
  - Platelet count decreased [Recovered/Resolved]
  - Leukopenia [Recovered/Resolved]
  - Granulocytopenia [Recovered/Resolved]
  - Haemoglobin decreased [Recovered/Resolved]
  - Renal impairment [Recovered/Resolved]
  - Renal failure [Recovered/Resolved]
  - Septic shock [Recovered/Resolved]
